FAERS Safety Report 5732046-5 (Version None)
Quarter: 2008Q2

REPORT INFORMATION
  Report Type: 
  Country: None (occurrence: None)
  Receive Date: 20080506
  Receipt Date: 20080421
  Transmission Date: 20081010
  Serious: Yes (Death, Hospitalization)
  Sender: FDA-Public Use
  Company Number: MEDI-0005984

PATIENT
  Age: 4 Month
  Sex: Female

DRUGS (4)
  1. SYNAGIS [Suspect]
     Indication: ANTIVIRAL PROPHYLAXIS
     Dosage: 80 MG, INTRAMUSCULAR
     Route: 030
     Dates: start: 20061018, end: 20070103
  2. PHENOXYBENZAMINE (PHENOXYBENZAMINE) [Concomitant]
  3. FUROSEMIDE [Concomitant]
  4. SILDENAFIL CITRATE [Concomitant]

REACTIONS (2)
  - COARCTATION OF THE AORTA [None]
  - SPINAL CORD ISCHAEMIA [None]
